FAERS Safety Report 14039542 (Version 3)
Quarter: 2018Q1

REPORT INFORMATION
  Report Type: Spontaneous
  Country: FR (occurrence: FR)
  Receive Date: 20171004
  Receipt Date: 20180122
  Transmission Date: 20180508
  Serious: Yes (Other)
  Sender: FDA-Public Use
  Company Number: FR-MERCK KGAA-2028780

PATIENT
  Age: 76 Year
  Sex: Female
  Weight: 82 kg

DRUGS (1)
  1. NOVOTHYROX [Suspect]
     Active Substance: LEVOTHYROXINE SODIUM
     Indication: PRODUCT USED FOR UNKNOWN INDICATION
     Dates: start: 2017, end: 201711

REACTIONS (18)
  - Asthenia [None]
  - Alopecia [None]
  - Suicide attempt [None]
  - Diarrhoea [None]
  - Nausea [None]
  - Blood pressure abnormal [None]
  - Hallucination [None]
  - Lyme disease [None]
  - Mood altered [None]
  - Blood thyroid stimulating hormone increased [None]
  - Fibromyalgia [None]
  - Weight increased [None]
  - Psoriasis [Recovering/Resolving]
  - Vertigo [None]
  - Pain [None]
  - Heart rate increased [None]
  - Constipation [None]
  - Myalgia [None]

NARRATIVE: CASE EVENT DATE: 2017
